FAERS Safety Report 22529871 (Version 1)
Quarter: 2023Q2

REPORT INFORMATION
  Report Type: Spontaneous
  Country: KR (occurrence: KR)
  Receive Date: 20230607
  Receipt Date: 20230607
  Transmission Date: 20230722
  Serious: Yes (Death, Other)
  Sender: FDA-Public Use
  Company Number: KR-ORGANON-O2305KOR003114

PATIENT
  Age: 85 Year
  Sex: Male
  Weight: 71 kg

DRUGS (30)
  1. COZAAR [Suspect]
     Active Substance: LOSARTAN POTASSIUM
     Dosage: (DOSAGE TERM: 925 DAY) (FILM-COATED TABLETS)
     Route: 048
     Dates: start: 20170628, end: 20200108
  2. RIVAROXABAN [Suspect]
     Active Substance: RIVAROXABAN
     Dosage: QD,  MICRONIZED  (FILM-COATED TABLETS)
     Route: 048
     Dates: start: 20190726, end: 20200117
  3. CARVEDILOL [Concomitant]
     Active Substance: CARVEDILOL
     Dosage: (UNCOATED TABLETS)
     Route: 048
     Dates: start: 20190515, end: 20191227
  4. DEXAMETHASONE\NEOMYCIN SULFATE\POLYMYXIN B SULFATE [Concomitant]
     Active Substance: DEXAMETHASONE\NEOMYCIN SULFATE\POLYMYXIN B SULFATE
     Dosage: DOSAGE TERM: 254 DAY, ROUTE: EYE
     Route: 047
     Dates: start: 20181129, end: 20190809
  5. AZELASTINE HYDROCHLORIDE [Concomitant]
     Active Substance: AZELASTINE HYDROCHLORIDE
     Dosage: (DOSAGE TERM: 512 DAY) (FILM-COATED TABLETS)
     Route: 048
     Dates: start: 20180409, end: 20190902
  6. CETIRIZINE HYDROCHLORIDE [Concomitant]
     Active Substance: CETIRIZINE HYDROCHLORIDE
     Dosage: UNK
     Route: 048
     Dates: start: 20180917, end: 20190902
  7. QUETIAPINE FUMARATE [Concomitant]
     Active Substance: QUETIAPINE FUMARATE
     Dosage: UNK
     Route: 048
     Dates: start: 20190708, end: 20200116
  8. QUETIAPINE FUMARATE [Concomitant]
     Active Substance: QUETIAPINE FUMARATE
     Dosage: UNK
     Route: 048
     Dates: start: 20190706, end: 20190911
  9. DUTASTERIDE [Concomitant]
     Active Substance: DUTASTERIDE
     Dosage: SOFT CAPSULES, LIQUID (DOSAGE TERM: 561 DAY)
     Route: 048
     Dates: start: 20180705, end: 20200116
  10. MIRABEGRON [Concomitant]
     Active Substance: MIRABEGRON
     Dosage: SUSTAINED-RELEASE FILM-COATED TABLETS
     Route: 048
     Dates: start: 20190513, end: 20200116
  11. PREDNISOLONE [Concomitant]
     Active Substance: PREDNISOLONE
     Dosage: (UNCOATED TABLETS)
     Route: 048
     Dates: start: 20180620, end: 20200216
  12. TORSEMIDE [Concomitant]
     Active Substance: TORSEMIDE
     Dosage: (UNCOATED TABLETS)
     Route: 048
     Dates: start: 20170502, end: 20200216
  13. SODIUM BICARBONATE [Concomitant]
     Active Substance: SODIUM BICARBONATE
     Dosage: UNK
     Route: 048
     Dates: start: 20181213, end: 20191107
  14. CALCIUM POLYSTYRENE SULFONATE [Concomitant]
     Active Substance: CALCIUM POLYSTYRENE SULFONATE
     Dosage: ORAL SUSPENSION
     Dates: start: 20161102, end: 20191115
  15. CALCIUM POLYSTYRENE SULFONATE [Concomitant]
     Active Substance: CALCIUM POLYSTYRENE SULFONATE
     Dosage: ORAL SUSPENSION
     Route: 048
     Dates: start: 20170616, end: 20191113
  16. HYDROCORTISONE [Concomitant]
     Active Substance: HYDROCORTISONE
     Dosage: (UNCOATED TABLETS)
     Route: 048
     Dates: start: 20190830, end: 20200116
  17. CALCIUM GLUCONATE MONOHYDRATE [Concomitant]
     Active Substance: CALCIUM GLUCONATE MONOHYDRATE
     Dosage: UNK
     Route: 042
     Dates: start: 20170615, end: 20200126
  18. MIDAZOLAM [Concomitant]
     Active Substance: MIDAZOLAM
     Dosage: SOLUTION INJECTION
     Route: 042
     Dates: start: 20190910, end: 20200123
  19. GLYCOPYRROLATE [Concomitant]
     Active Substance: GLYCOPYRROLATE
     Dosage: UNK
     Route: 042
     Dates: start: 20180220, end: 20190910
  20. FENTANYL CITRATE [Concomitant]
     Active Substance: FENTANYL CITRATE
     Dosage: (DOSAGE TERM: 568 DAY)
     Route: 042
     Dates: start: 20180220, end: 20190910
  21. PROPOFOL [Concomitant]
     Active Substance: PROPOFOL
     Dosage: UNK
     Route: 042
     Dates: start: 20190910, end: 20190910
  22. PIPERACILLIN SODIUM\TAZOBACTAM SODIUM [Concomitant]
     Active Substance: PIPERACILLIN SODIUM\TAZOBACTAM SODIUM
     Dosage: (LYOPHILIZED POWDER INJECTION FOR SOLUTION)
     Route: 042
     Dates: start: 20170624, end: 20200215
  23. VANCOMYCIN [Concomitant]
     Active Substance: VANCOMYCIN
     Dosage: UNK
     Route: 042
     Dates: start: 20190910, end: 20190910
  24. LORAZEPAM [Concomitant]
     Active Substance: LORAZEPAM
     Dosage: (UNCOATED TABLETS)
     Route: 048
     Dates: start: 20181116, end: 20190911
  25. TRAZODONE HYDROCHLORIDE [Concomitant]
     Active Substance: TRAZODONE HYDROCHLORIDE
     Dosage: UNK
     Route: 048
     Dates: start: 20161228, end: 20200116
  26. DULOXETINE HYDROCHLORIDE [Concomitant]
     Active Substance: DULOXETINE HYDROCHLORIDE
     Dosage: (ENTERIC CAPSULES, PELLETS)
     Route: 048
     Dates: start: 20161128, end: 20200116
  27. FERRIC HYDROXIDE SUCROSE COMPLEX [Concomitant]
     Dosage: UNK
     Route: 042
     Dates: start: 20190928, end: 20191004
  28. ACETAMINOPHEN\TRAMADOL HYDROCHLORIDE [Concomitant]
     Active Substance: ACETAMINOPHEN\TRAMADOL HYDROCHLORIDE
     Dosage: UNK
     Route: 048
     Dates: start: 20181224, end: 20191216
  29. REBAMIPIDE [Concomitant]
     Active Substance: REBAMIPIDE
     Dosage: UNK
     Route: 048
     Dates: start: 20170929, end: 20191216
  30. FUROSEMIDE [Concomitant]
     Active Substance: FUROSEMIDE
     Dosage: UNK
     Route: 042
     Dates: start: 20191113, end: 20191115

REACTIONS (2)
  - Cardiac arrest [Fatal]
  - Hyperkalaemia [Recovered/Resolved]

NARRATIVE: CASE EVENT DATE: 20191113
